FAERS Safety Report 8852753 (Version 1)
Quarter: 2012Q4

REPORT INFORMATION
  Report Type: 
  Country: GR (occurrence: GR)
  Receive Date: 20121022
  Receipt Date: 20121022
  Transmission Date: 20130627
  Serious: Yes (Other)
  Sender: FDA-Public Use
  Company Number: GR-PFIZER INC-2012256967

PATIENT
  Age: 65 Year
  Sex: Male

DRUGS (2)
  1. VIAGRA [Suspect]
     Indication: ERECTILE DYSFUNCTION
     Dosage: UNK
     Dates: start: 201209
  2. EXFORGE [Concomitant]
     Indication: HYPERTENSION
     Dosage: 10 mg, UNK

REACTIONS (2)
  - Eye inflammation [Unknown]
  - Drug ineffective [Unknown]
